FAERS Safety Report 16991454 (Version 4)
Quarter: 2020Q1

REPORT INFORMATION
  Report Type: Report from Study
  Country: US (occurrence: US)
  Receive Date: 20191104
  Receipt Date: 20200227
  Transmission Date: 20200409
  Serious: Yes (Hospitalization, Other)
  Sender: FDA-Public Use
  Company Number: US-ACTELION-A-NJ2019-192537

PATIENT
  Age: 34 Year
  Sex: Female
  Weight: 84.81 kg

DRUGS (6)
  1. VELETRI [Suspect]
     Active Substance: EPOPROSTENOL
     Dosage: 9 NG/KG, PER MIN
     Route: 042
     Dates: start: 20190622
  2. VELETRI [Suspect]
     Active Substance: EPOPROSTENOL
     Indication: PULMONARY ARTERIAL HYPERTENSION
     Dosage: 20 NG/KG, PER MIN
     Route: 042
  3. LETAIRIS [Suspect]
     Active Substance: AMBRISENTAN
     Indication: PRODUCT USED FOR UNKNOWN INDICATION
     Route: 065
  4. VELETRI [Suspect]
     Active Substance: EPOPROSTENOL
     Dosage: 4 NG/KG, PER MIN
     Route: 042
     Dates: start: 20190618
  5. VELETRI [Suspect]
     Active Substance: EPOPROSTENOL
     Dosage: 19 NG/KG, PER MIN
     Route: 042
  6. VELETRI [Suspect]
     Active Substance: EPOPROSTENOL
     Dosage: 18 NG/KG, PER MIN
     Route: 042

REACTIONS (11)
  - Pain in jaw [Unknown]
  - Headache [Unknown]
  - Device issue [Unknown]
  - Adverse event [Unknown]
  - Flushing [Unknown]
  - Fluid retention [Unknown]
  - Dyspnoea [Unknown]
  - Catheter site infection [Recovering/Resolving]
  - Catheter management [Unknown]
  - Catheter site vesicles [Unknown]
  - Fractured coccyx [Unknown]

NARRATIVE: CASE EVENT DATE: 201906
